FAERS Safety Report 19646660 (Version 1)
Quarter: 2021Q3

REPORT INFORMATION
  Report Type: Spontaneous
  Country: BR (occurrence: BR)
  Receive Date: 20210802
  Receipt Date: 20210802
  Transmission Date: 20211014
  Serious: Yes (Other)
  Sender: FDA-Public Use
  Company Number: BR-SA-2021SA174374

PATIENT
  Age: 43 Year
  Sex: Female

DRUGS (5)
  1. PANTOPRAZOLE [Concomitant]
     Active Substance: PANTOPRAZOLE
     Indication: GASTRITIS
     Dosage: UNK
     Dates: start: 20210517
  2. CLEXANE [Suspect]
     Active Substance: ENOXAPARIN SODIUM
     Indication: METABOLIC SURGERY
     Dosage: UNK
     Route: 065
     Dates: start: 20210513, end: 20210514
  3. DRAMIN [Concomitant]
     Active Substance: DIMENHYDRINATE
     Indication: NAUSEA
     Dosage: UNK
     Dates: start: 20210517
  4. SIMETHICONE (DIMETHICONE) [Suspect]
     Active Substance: DIMETHICONE
     Indication: FLATULENCE
     Dosage: 6/6 HOURS
     Route: 048
     Dates: start: 20210511
  5. CLEXANE [Suspect]
     Active Substance: ENOXAPARIN SODIUM

REACTIONS (6)
  - Vomiting [Recovered/Resolved]
  - Haematemesis [Recovered/Resolved]
  - Haematochezia [Recovered/Resolved]
  - Thrombosis [Recovered/Resolved]
  - Off label use [Unknown]
  - Metabolic surgery [Recovered/Resolved]

NARRATIVE: CASE EVENT DATE: 20210514
